FAERS Safety Report 10456549 (Version 3)
Quarter: 2014Q4

REPORT INFORMATION
  Report Type: Spontaneous
  Country: FR (occurrence: FR)
  Receive Date: 20140916
  Receipt Date: 20141020
  Transmission Date: 20150528
  Serious: Yes (Death, Hospitalization, Other)
  Sender: FDA-Public Use
  Company Number: FR-JNJFOC-20140911175

PATIENT
  Age: 80 Year
  Sex: Female
  Weight: 80 kg

DRUGS (10)
  1. XARELTO [Suspect]
     Active Substance: RIVAROXABAN
     Indication: EMBOLISM VENOUS
     Dosage: SECOND TABLET IN THE MORNING BETWEEN 7 AND 8 O^CLOCK
     Route: 048
     Dates: start: 20140827
  2. SPIRIVA [Concomitant]
     Active Substance: TIOTROPIUM BROMIDE MONOHYDRATE
     Route: 065
  3. SERETIDE [Concomitant]
     Active Substance: FLUTICASONE FUROATE\SALMETEROL XINAFOATE
     Route: 065
  4. LOVENOX [Concomitant]
     Active Substance: ENOXAPARIN SODIUM
     Route: 065
     Dates: start: 20140826
  5. LOVENOX [Concomitant]
     Active Substance: ENOXAPARIN SODIUM
     Route: 065
     Dates: start: 20140823, end: 20140825
  6. XARELTO [Suspect]
     Active Substance: RIVAROXABAN
     Indication: EMBOLISM VENOUS
     Dosage: SECOND TABLET IN THE MORNING BETWEEN 7 AND  8 0^ CLOCK
     Route: 048
     Dates: start: 20140826
  7. LASILIX [Concomitant]
     Active Substance: FUROSEMIDE
     Route: 065
  8. SERESTA [Concomitant]
     Active Substance: OXAZEPAM
     Route: 065
  9. XARELTO [Suspect]
     Active Substance: RIVAROXABAN
     Indication: PULMONARY EMBOLISM
     Dosage: SECOND TABLET IN THE MORNING BETWEEN 7 AND 8 O^CLOCK
     Route: 048
     Dates: start: 20140827
  10. XARELTO [Suspect]
     Active Substance: RIVAROXABAN
     Indication: PULMONARY EMBOLISM
     Dosage: SECOND TABLET IN THE MORNING BETWEEN 7 AND  8 0^ CLOCK
     Route: 048
     Dates: start: 20140826

REACTIONS (5)
  - Shock haemorrhagic [Fatal]
  - Septic shock [Fatal]
  - Abdominal pain [Unknown]
  - Anuria [Unknown]
  - Haemorrhage [Unknown]

NARRATIVE: CASE EVENT DATE: 201408
